FAERS Safety Report 11713477 (Version 1)
Quarter: 2015Q4

REPORT INFORMATION
  Report Type: Spontaneous
  Country: ES (occurrence: ES)
  Receive Date: 20151109
  Receipt Date: 20151109
  Transmission Date: 20160304
  Serious: Yes (Other)
  Sender: FDA-Public Use
  Company Number: ES-009507513-1511ESP003040

PATIENT
  Age: 31 Year
  Sex: Female
  Weight: 75 kg

DRUGS (3)
  1. ANTALGIN (NAPROXEN SODIUM) [Concomitant]
     Indication: MENSTRUAL DISCOMFORT
     Dosage: 550 MG ONCE A DAY, IF REQUIRED FOR MENSTRUAL PAIN
     Route: 065
     Dates: start: 20050521, end: 20151004
  2. VALIUM [Concomitant]
     Active Substance: DIAZEPAM
     Indication: GENERALISED ANXIETY DISORDER
     Dosage: 1 TABLET DIVIDED IN 3 INTAKES /DAY
     Route: 065
     Dates: start: 20080404
  3. AERIUS [Suspect]
     Active Substance: DESLORATADINE
     Indication: HYPERSENSITIVITY
     Dosage: 1 TABLET A DAY, NOT EVERY DAY, ONLY WHEN NECESSARY
     Route: 048
     Dates: start: 20041010

REACTIONS (6)
  - Phonological disorder [Recovering/Resolving]
  - Vertigo [Recovering/Resolving]
  - Tremor [Recovering/Resolving]
  - Asthenia [Recovering/Resolving]
  - Confusional state [Recovering/Resolving]
  - Anxiety [Recovering/Resolving]

NARRATIVE: CASE EVENT DATE: 20151023
